FAERS Safety Report 18566380 (Version 1)
Quarter: 2020Q4

REPORT INFORMATION
  Report Type: Spontaneous
  Country: ES (occurrence: ES)
  Receive Date: 20201201
  Receipt Date: 20201201
  Transmission Date: 20210114
  Serious: Yes (Other)
  Sender: FDA-Public Use
  Company Number: ES-MYLANLABS-2020M1097429

PATIENT
  Age: 42 Year
  Sex: Female

DRUGS (2)
  1. LEVETIRACETAM. [Suspect]
     Active Substance: LEVETIRACETAM
     Dosage: 1000 MILLIGRAM, QD (500 MILLIGRAM, 2X/DAY (BID)
  2. LEVETIRACETAM. [Suspect]
     Active Substance: LEVETIRACETAM
     Indication: PRODUCT USED FOR UNKNOWN INDICATION
     Dosage: 2000 MILLIGRAM, QD (1000 MILLIGRAM, 2X/DAY (BID)

REACTIONS (4)
  - Seizure [Recovering/Resolving]
  - Irritability [Recovering/Resolving]
  - Cognitive disorder [Recovering/Resolving]
  - Somnolence [Recovered/Resolved]
